FAERS Safety Report 8538356-0 (Version None)
Quarter: 2012Q3

REPORT INFORMATION
  Report Type: 
  Country: None (occurrence: None)
  Receive Date: 20120726
  Receipt Date: 20120723
  Transmission Date: 20120928
  Serious: Yes (Other)
  Sender: FDA-Public Use
  Company Number: US-PFIZER INC-2012150144

PATIENT
  Sex: Male
  Weight: 100.68 kg

DRUGS (2)
  1. CHANTIX [Suspect]
     Indication: SMOKING CESSATION THERAPY
     Dosage: 0.5 MG, 1X/DAY
     Route: 048
     Dates: start: 20120616
  2. CHANTIX [Suspect]
     Dosage: 1 MG, 2X/DAY
     Route: 048
     Dates: end: 20120711

REACTIONS (15)
  - LOSS OF CONSCIOUSNESS [None]
  - AMNESIA [None]
  - SOMNOLENCE [None]
  - ANGER [None]
  - SEXUAL INHIBITION [None]
  - MALAISE [None]
  - MOTOR DYSFUNCTION [None]
  - HEADACHE [None]
  - FATIGUE [None]
  - PAIN IN EXTREMITY [None]
  - HOT FLUSH [None]
  - NECK PAIN [None]
  - FEELING ABNORMAL [None]
  - CHEST PAIN [None]
  - ABNORMAL DREAMS [None]
